FAERS Safety Report 24712156 (Version 4)
Quarter: 2025Q1

REPORT INFORMATION
  Report Type: Spontaneous
  Country: US (occurrence: US)
  Receive Date: 20241209
  Receipt Date: 20250103
  Transmission Date: 20250408
  Serious: Yes (Other)
  Sender: PFIZER
  Company Number: US-PFIZER INC-PV202400063864

PATIENT
  Age: 70 Year
  Sex: Female
  Weight: 92.08 kg

DRUGS (4)
  1. TIKOSYN [Suspect]
     Active Substance: DOFETILIDE
     Indication: Atrial fibrillation
  2. TIKOSYN [Suspect]
     Active Substance: DOFETILIDE
     Dosage: 125 MCG, 2 TABLETS TWICE DAILY
  3. TIKOSYN [Suspect]
     Active Substance: DOFETILIDE
     Dosage: 125 UG, 4X/DAY
  4. METOPROLOL [Concomitant]
     Active Substance: METOPROLOL

REACTIONS (2)
  - Tooth extraction [Unknown]
  - Pain [Unknown]
